FAERS Safety Report 9513938 (Version 1)
Quarter: 2013Q3

REPORT INFORMATION
  Report Type: Spontaneous
  Country: CA (occurrence: CA)
  Receive Date: 20130910
  Receipt Date: 20130910
  Transmission Date: 20140515
  Serious: Yes (Other)
  Sender: FDA-Public Use
  Company Number: CA-ELI_LILLY_AND_COMPANY-CA201309002030

PATIENT
  Sex: Female

DRUGS (1)
  1. HUMULIN REGULAR [Suspect]

REACTIONS (1)
  - Blindness [Not Recovered/Not Resolved]
